FAERS Safety Report 8840041 (Version 2)
Quarter: 2014Q2

REPORT INFORMATION
  Report Type: Spontaneous
  Country: US (occurrence: US)
  Receive Date: 20121015
  Receipt Date: 20131024
  Transmission Date: 20141212
  Serious: No
  Sender: FDA-Public Use
  Company Number: US-PFIZER INC-2012251945

PATIENT
  Age: 34 Year
  Sex: Female
  Weight: 58.96 kg

DRUGS (3)
  1. SOLU-CORTEF [Suspect]
     Indication: ADRENAL INSUFFICIENCY
     Dosage: 25 MG, DAILY
     Route: 058
     Dates: start: 1980
  2. SOLU-CORTEF [Suspect]
     Dosage: 100 MG, DAILY IN ADRENAL CRISIS
     Route: 030
  3. FLORINEF [Concomitant]
     Indication: ADRENAL INSUFFICIENCY
     Dosage: 0.1 MG, DAILY
     Dates: start: 1985

REACTIONS (4)
  - Injection site irritation [Not Recovered/Not Resolved]
  - Injection site erythema [Not Recovered/Not Resolved]
  - Injection site swelling [Not Recovered/Not Resolved]
  - Injection site pruritus [Not Recovered/Not Resolved]
